FAERS Safety Report 7107859-8 (Version None)
Quarter: 2010Q4

REPORT INFORMATION
  Report Type: 
  Country: None (occurrence: None)
  Receive Date: 20101117
  Receipt Date: 20101028
  Transmission Date: 20110411
  Serious: Yes (Hospitalization)
  Sender: FDA-Public Use
  Company Number: US-BAYER-201039165NA

PATIENT
  Age: 43 Year
  Sex: Female
  Weight: 102 kg

DRUGS (21)
  1. YAZ [Suspect]
     Indication: ORAL CONTRACEPTION
     Route: 048
     Dates: start: 20051101, end: 20060301
  2. YASMIN [Suspect]
     Indication: ORAL CONTRACEPTION
     Route: 048
     Dates: start: 20051103, end: 20060307
  3. ADVIL [Concomitant]
  4. ALEVE (CAPLET) [Concomitant]
     Dates: start: 20000101, end: 20100101
  5. POTASSIUM-SPARING DIURETICS [Concomitant]
  6. DIAMOX CR [Concomitant]
     Indication: INTRACRANIAL PRESSURE INCREASED
     Route: 048
  7. K-DUR [Concomitant]
     Indication: BLOOD POTASSIUM ABNORMAL
  8. SYNTHROID [Concomitant]
     Indication: HYPOTHYROIDISM
     Dosage: 200 MCG
     Route: 048
  9. CYTOMEL [Concomitant]
     Indication: HYPOTHYROIDISM
     Dosage: 25 MCG
     Route: 048
  10. CORTEF [Concomitant]
     Indication: ENDOCRINE DISORDER
     Dosage: 2 PILLS AM + 1 PM
     Route: 048
  11. AVANDAMET [Concomitant]
     Indication: GLUCOSE TOLERANCE IMPAIRED
     Dosage: 4/1000 IN AM
  12. PRECOSE [Concomitant]
     Indication: ENDOCRINE DISORDER
     Route: 048
  13. TESTOSTERONE [Concomitant]
     Indication: BLOOD TESTOSTERONE DECREASED
  14. ACTONEL [Concomitant]
     Indication: BONE DENSITY DECREASED
  15. VITAMIN B-12 [Concomitant]
     Dosage: 1000 MCG
     Dates: start: 20060228
  16. FOLIC ACID [Concomitant]
     Dates: start: 20060228
  17. NEXIUM [Concomitant]
     Indication: DYSPEPSIA
     Route: 048
  18. ESKALITH CR [Concomitant]
     Indication: BIPOLAR DISORDER
  19. ALLEGRA [Concomitant]
     Indication: HYPERSENSITIVITY
     Route: 048
  20. DARVOCET-N 100 [Concomitant]
     Indication: PAIN
     Dosage: UP TO 3 DAILY
     Route: 048
  21. NORCO [Concomitant]
     Indication: PAIN
     Dosage: 7.5/200
     Route: 048

REACTIONS (3)
  - DEEP VEIN THROMBOSIS [None]
  - OEDEMA PERIPHERAL [None]
  - PAIN IN EXTREMITY [None]
